FAERS Safety Report 8397501-0 (Version None)
Quarter: 2012Q2

REPORT INFORMATION
  Report Type: 
  Country: None (occurrence: None)
  Receive Date: 20120529
  Receipt Date: 20120529
  Transmission Date: 20120825
  Serious: Yes (Disabling)
  Sender: FDA-Public Use
  Company Number: None

PATIENT
  Sex: Female
  Weight: 70 kg

DRUGS (10)
  1. MILK OF MAGNESIA TAB [Concomitant]
  2. HYDRALAZINE HCL [Concomitant]
  3. ACETAMINOPHEN [Concomitant]
  4. CIPROFLOXACIN HCL [Concomitant]
  5. MAGNESIUM HYDROXIDE TAB [Concomitant]
  6. TEKTURNA [Concomitant]
  7. XARELTO [Suspect]
     Indication: ATRIAL FIBRILLATION
     Dosage: 15 MG DAILY PO
     Route: 048
     Dates: start: 20111201, end: 20120117
  8. LEVEMIR [Concomitant]
  9. PROTONIX [Concomitant]
  10. REGULAR INSULIN [Concomitant]

REACTIONS (9)
  - SUBDURAL HAEMORRHAGE [None]
  - DYSPHAGIA [None]
  - CEREBRAL HAEMATOMA [None]
  - RECTAL HAEMORRHAGE [None]
  - LOSS OF CONSCIOUSNESS [None]
  - GRAND MAL CONVULSION [None]
  - HAEMORRHAGIC STROKE [None]
  - UNRESPONSIVE TO STIMULI [None]
  - ISCHAEMIC STROKE [None]
